FAERS Safety Report 25773467 (Version 1)
Quarter: 2025Q3

REPORT INFORMATION
  Report Type: Spontaneous
  Country: US (occurrence: None)
  Receive Date: 20250906
  Receipt Date: 20250906
  Transmission Date: 20251021
  Serious: Yes (Hospitalization)
  Sender: FDA-CTU
  Company Number: None

PATIENT
  Age: 63 Year
  Sex: Male
  Weight: 106.8 kg

DRUGS (2)
  1. TAXOTERE [Suspect]
     Active Substance: DOCETAXEL
     Dates: end: 20250418
  2. GEMCITABINE HYDROCHLORIDE [Suspect]
     Active Substance: GEMCITABINE HYDROCHLORIDE
     Dates: end: 20250418

REACTIONS (6)
  - Abdominal pain [None]
  - Pyrexia [None]
  - Diverticulitis [None]
  - Enterocolitis infectious [None]
  - Nephrolithiasis [None]
  - Ventricular arrhythmia [None]

NARRATIVE: CASE EVENT DATE: 20250818
